FAERS Safety Report 7238116-7 (Version None)
Quarter: 2011Q1

REPORT INFORMATION
  Report Type: 
  Country: None (occurrence: None)
  Receive Date: 20110121
  Receipt Date: 20110110
  Transmission Date: 20110831
  Serious: Yes (Hospitalization, Disabling, Other)
  Sender: FDA-Public Use
  Company Number: US-ELI_LILLY_AND_COMPANY-US201101002589

PATIENT
  Sex: Male

DRUGS (3)
  1. MIRAPEX [Concomitant]
  2. ZYPREXA [Suspect]
     Indication: SLEEP APNOEA SYNDROME
     Dates: end: 20091201
  3. PROVIGIL [Concomitant]

REACTIONS (13)
  - DELAYED SLEEP PHASE [None]
  - METABOLIC SYNDROME [None]
  - OFF LABEL USE [None]
  - WEIGHT INCREASED [None]
  - POST-TRAUMATIC STRESS DISORDER [None]
  - COGNITIVE DISORDER [None]
  - CARDIOVASCULAR DISORDER [None]
  - DEPRESSION [None]
  - PSYCHOTIC DISORDER [None]
  - MENTAL IMPAIRMENT [None]
  - SUICIDAL IDEATION [None]
  - ADVERSE EVENT [None]
  - NERVOUS SYSTEM DISORDER [None]
